FAERS Safety Report 22724924 (Version 3)
Quarter: 2023Q4

REPORT INFORMATION
  Report Type: Report from Study
  Country: CL (occurrence: CL)
  Receive Date: 20230719
  Receipt Date: 20231229
  Transmission Date: 20240109
  Serious: Yes (Life-Threatening, Hospitalization, Other)
  Sender: FDA-Public Use
  Company Number: CL-JNJFOC-20230636893

PATIENT
  Age: 58 Year
  Sex: Male

DRUGS (2)
  1. REMICADE [Suspect]
     Active Substance: INFLIXIMAB
     Indication: Crohn^s disease
     Route: 041
     Dates: start: 20230502, end: 20230523
  2. REMICADE [Suspect]
     Active Substance: INFLIXIMAB
     Route: 041
     Dates: start: 202303

REACTIONS (17)
  - Anaphylactic shock [Recovered/Resolved]
  - Hypersensitivity [Unknown]
  - Infusion related reaction [Recovered/Resolved]
  - Bronchitis [Recovering/Resolving]
  - Pain [Recovered/Resolved]
  - Pruritus [Recovered/Resolved]
  - Hypothyroidism [Unknown]
  - Diabetes mellitus [Unknown]
  - Paralysis [Unknown]
  - Memory impairment [Unknown]
  - Influenza like illness [Recovering/Resolving]
  - Gastrointestinal disorder [Not Recovered/Not Resolved]
  - Respiratory disorder [Recovered/Resolved]
  - Cardiac disorder [Recovered/Resolved]
  - Hypokinesia [Recovered/Resolved]
  - Aphasia [Unknown]
  - Poor quality product administered [Unknown]

NARRATIVE: CASE EVENT DATE: 20230501
